FAERS Safety Report 6383606-2 (Version None)
Quarter: 2009Q3

REPORT INFORMATION
  Report Type: 
  Country: None (occurrence: None)
  Receive Date: 20090929
  Receipt Date: 20090929
  Transmission Date: 20100115
  Serious: Yes (Hospitalization)
  Sender: FDA-Public Use
  Company Number: None

PATIENT
  Age: 72 Year
  Sex: Male
  Weight: 85.7 kg

DRUGS (2)
  1. GLYBURIDE [Suspect]
     Indication: TYPE 2 DIABETES MELLITUS
     Dosage: 5 MG EVERY DAY PO
     Route: 048
     Dates: start: 20020405, end: 20090926
  2. INSULIN [Suspect]
     Indication: TYPE 2 DIABETES MELLITUS
     Dosage: 4-12 UNITS PRN SQ
     Route: 058
     Dates: start: 20081125, end: 20090926

REACTIONS (1)
  - HYPOGLYCAEMIA [None]
